FAERS Safety Report 25686943 (Version 3)
Quarter: 2025Q4

REPORT INFORMATION
  Report Type: Spontaneous
  Country: US (occurrence: US)
  Receive Date: 20250816
  Receipt Date: 20251010
  Transmission Date: 20260118
  Serious: Yes (Other)
  Sender: RADIUS PHARM
  Company Number: US-RADIUS HEALTH INC.-US-RADIUS-25052260

PATIENT
  Sex: Female

DRUGS (9)
  1. TYMLOS [Suspect]
     Active Substance: ABALOPARATIDE
     Indication: Product used for unknown indication
     Dosage: 4 CLICKS
     Route: 065
  2. TYMLOS [Suspect]
     Active Substance: ABALOPARATIDE
     Dosage: 30 MICROGRAM
     Route: 065
  3. TYMLOS [Suspect]
     Active Substance: ABALOPARATIDE
     Dosage: 30 MICROGRAM, QOD
     Route: 065
  4. TYMLOS [Suspect]
     Active Substance: ABALOPARATIDE
     Dosage: 2 CLICKS
     Route: 065
  5. TYMLOS [Suspect]
     Active Substance: ABALOPARATIDE
     Dosage: 1 CLICK
     Route: 065
  6. TYLENOL [Suspect]
     Active Substance: ACETAMINOPHEN
     Indication: Compression fracture
     Dosage: UNK
     Route: 065
  7. CALCIUM\MAGNESIUM [Concomitant]
     Active Substance: CALCIUM\MAGNESIUM
     Indication: Product used for unknown indication
  8. JWH-018 [Concomitant]
     Active Substance: JWH-018
     Indication: Product used for unknown indication
  9. VITAMIN D NOS [Concomitant]
     Active Substance: CHOLECALCIFEROL\ERGOCALCIFEROL
     Indication: Product used for unknown indication

REACTIONS (22)
  - Spinal fracture [Unknown]
  - Compression fracture [Unknown]
  - Brain fog [Recovering/Resolving]
  - Sinus disorder [Unknown]
  - Alopecia [Not Recovered/Not Resolved]
  - Skin disorder [Recovering/Resolving]
  - Seasonal allergy [Recovering/Resolving]
  - Hepatic enzyme increased [Unknown]
  - Blood parathyroid hormone decreased [Not Recovered/Not Resolved]
  - Dry mouth [Unknown]
  - Oropharyngeal plaque [Unknown]
  - Pain [Recovering/Resolving]
  - Blood pressure increased [Not Recovered/Not Resolved]
  - Headache [Recovering/Resolving]
  - Nausea [Not Recovered/Not Resolved]
  - Fatigue [Recovering/Resolving]
  - Dizziness [Not Recovered/Not Resolved]
  - Palpitations [Not Recovered/Not Resolved]
  - Hypercalciuria [Not Recovered/Not Resolved]
  - Abdominal distension [Recovering/Resolving]
  - Underdose [Unknown]
  - Underdose [Unknown]
